FAERS Safety Report 23259960 (Version 1)
Quarter: 2023Q4

REPORT INFORMATION
  Report Type: Spontaneous
  Country: None (occurrence: US)
  Receive Date: 20231204
  Receipt Date: 20231204
  Transmission Date: 20240110
  Serious: Yes (Disabling)
  Sender: FDA-Public Use
  Company Number: US-Imprimis NJOF, LLC-2148982

PATIENT
  Sex: Female

DRUGS (1)
  1. PHENYLEPHRINE HYDROCHLORIDE\TROPICAMIDE [Suspect]
     Active Substance: PHENYLEPHRINE HYDROCHLORIDE\TROPICAMIDE
     Route: 047
     Dates: start: 20231117

REACTIONS (1)
  - Blindness unilateral [Not Recovered/Not Resolved]
